FAERS Safety Report 12256366 (Version 1)
Quarter: 2016Q2

REPORT INFORMATION
  Report Type: Spontaneous
  Country: US (occurrence: None)
  Receive Date: 20160411
  Receipt Date: 20160411
  Transmission Date: 20160815
  Serious: No
  Sender: FDA-Public Use
  Company Number: None

PATIENT
  Sex: Male

DRUGS (1)
  1. HYDROCODONE [Suspect]
     Active Substance: HYDROCODONE

REACTIONS (2)
  - Therapy cessation [None]
  - Drug ineffective [None]
